FAERS Safety Report 14297025 (Version 1)
Quarter: 2017Q4

REPORT INFORMATION
  Report Type: Spontaneous
  Country: US (occurrence: US)
  Receive Date: 20171218
  Receipt Date: 20171218
  Transmission Date: 20180321
  Serious: Yes (Other)
  Sender: FDA-Public Use
  Company Number: None

PATIENT
  Age: 83 Year
  Sex: Female
  Weight: 90.72 kg

DRUGS (4)
  1. COREG [Suspect]
     Active Substance: CARVEDILOL
  2. ASPIRIN. [Concomitant]
     Active Substance: ASPIRIN
  3. TYLENOL [Concomitant]
     Active Substance: ACETAMINOPHEN
  4. COREG [Suspect]
     Active Substance: CARVEDILOL
     Indication: HYPERTENSION
     Dates: start: 20170624, end: 20170905

REACTIONS (5)
  - Pain [None]
  - Hypoaesthesia [None]
  - Carpal tunnel syndrome [None]
  - Extra dose administered [None]
  - Adrenal calcification [None]

NARRATIVE: CASE EVENT DATE: 20170905
